FAERS Safety Report 5818621-8 (Version None)
Quarter: 2008Q3

REPORT INFORMATION
  Report Type: 
  Country: None (occurrence: None)
  Receive Date: 20080722
  Receipt Date: 20080711
  Transmission Date: 20090109
  Serious: Yes (Hospitalization, Other)
  Sender: FDA-Public Use
  Company Number: US-ELI_LILLY_AND_COMPANY-US200807000831

PATIENT
  Sex: Male

DRUGS (27)
  1. BYETTA [Suspect]
     Indication: WEIGHT DECREASED
     Dosage: 5 UG, 2/D
     Route: 058
     Dates: start: 20080401, end: 20080501
  2. BYETTA [Suspect]
     Dosage: 10 UG, 2/D
     Route: 058
     Dates: start: 20080501, end: 20080601
  3. BYETTA [Suspect]
     Dosage: 10 UG, 2/D
     Route: 058
     Dates: start: 20080711
  4. DULCOLAX [Concomitant]
     Dosage: UNK, AS NEEDED
     Route: 048
  5. ALLOPURINOL [Concomitant]
     Dosage: 300 MG, DAILY (1/D)
     Route: 048
  6. BUSPIRONE HCL [Concomitant]
     Dosage: 5 MG, 3/D
     Route: 048
  7. FINASTERIDE [Concomitant]
     Dosage: 5 MG, DAILY (1/D)
     Route: 048
  8. FLOMAX [Concomitant]
     Dosage: 4 MG, DAILY (1/D)
     Route: 048
  9. GABAPENTIN [Concomitant]
     Dosage: 600 MG, 2/D
  10. HYDROCODONE BITARTRATE [Concomitant]
     Indication: PAIN
     Dosage: UNK, AS NEEDED
     Route: 048
  11. METOPROLOL TARTRATE [Concomitant]
     Dosage: 50 MG, DAILY (1/D)
     Route: 048
  12. METFORMIN HCL [Concomitant]
     Dosage: 500 MG, DAILY (1/D)
     Route: 048
     Dates: start: 20080401, end: 20080601
  13. METFORMIN HCL [Concomitant]
     Dosage: 500 MG, UNK
     Dates: start: 20080711
  14. PREVACID [Concomitant]
     Dates: end: 20080501
  15. PREVACID [Concomitant]
     Dosage: 30 MG, DAILY (1/D)
  16. TESTOSTERONE [Concomitant]
     Dosage: 150 MG, 2/W
  17. DELTASONE [Concomitant]
     Dosage: 20 MG, DAILY (1/D)
  18. MULTI-VITAMIN [Concomitant]
     Dosage: UNK, DAILY (1/D)
  19. FISH OIL [Concomitant]
     Dosage: 100 MG, DAILY (1/D)
  20. LYRICA [Concomitant]
     Dosage: 50 MG, 2/D
  21. ASPIRIN [Concomitant]
     Dosage: 325 MG, DAILY (1/D)
     Dates: end: 20080704
  22. FOLATE [Concomitant]
     Dosage: 800 MG, DAILY (1/D)
  23. FERROUS SULFATE TAB [Concomitant]
     Dosage: 325 MG, 2/D
     Route: 048
     Dates: start: 20080616
  24. CALCIUM [Concomitant]
     Dosage: 600 MG, DAILY (1/D)
  25. MELATONIN [Concomitant]
     Dosage: 5 MG, DAILY (1/D)
  26. ZINC [Concomitant]
     Dosage: 50 MG, DAILY (1/D)
  27. VITAMIN D [Concomitant]
     Dosage: 1200 U, UNK

REACTIONS (8)
  - ASTHENIA [None]
  - CAROTID ARTERY INSUFFICIENCY [None]
  - CHEST PAIN [None]
  - DIZZINESS [None]
  - EYE DISORDER [None]
  - FEELING ABNORMAL [None]
  - SINUS CONGESTION [None]
  - VERTIGO [None]
